FAERS Safety Report 5132455-1 (Version None)
Quarter: 2006Q4

REPORT INFORMATION
  Report Type: 
  Country: None (occurrence: None)
  Receive Date: 20061023
  Receipt Date: 20061013
  Transmission Date: 20070319
  Serious: Yes (Hospitalization)
  Sender: FDA-Public Use
  Company Number: FR-JNJFOC-20060606050

PATIENT
  Age: 64 Year
  Sex: Female
  Weight: 67 kg

DRUGS (12)
  1. REMICADE [Suspect]
     Indication: DRUG USE FOR UNKNOWN INDICATION
     Dosage: 5 INFUSIONS
     Route: 042
  2. INIPOMP 20 [Concomitant]
     Indication: GASTRITIS
     Route: 065
  3. CELEBREX [Concomitant]
     Indication: CHONDROCALCINOSIS
     Route: 065
  4. FORLAX [Concomitant]
     Indication: CONSTIPATION
     Route: 065
  5. DOLIPRANE [Concomitant]
     Indication: ANALGESIC EFFECT
     Route: 065
  6. DIOSMINE [Concomitant]
     Indication: VENOUS INSUFFICIENCY
     Route: 065
  7. COLTRAMYL [Concomitant]
     Route: 065
  8. LACRYVISC [Concomitant]
     Indication: DRY EYE
     Route: 065
  9. VITAMIN A [Concomitant]
     Indication: DRY EYE
     Route: 065
  10. DHEA [Concomitant]
     Indication: DRY EYE
     Route: 065
  11. OXYCONTIN [Concomitant]
     Route: 065
  12. OXYNORM [Concomitant]
     Route: 065

REACTIONS (2)
  - INFUSION RELATED REACTION [None]
  - PUSTULAR PSORIASIS [None]
